FAERS Safety Report 8721939 (Version 2)
Quarter: 2013Q3

REPORT INFORMATION
  Report Type: Spontaneous
  Country: GT (occurrence: BB)
  Receive Date: 20120814
  Receipt Date: 20130924
  Transmission Date: 20140515
  Serious: Yes (Death, Other)
  Sender: FDA-Public Use
  Company Number: PHHY2012BB069892

PATIENT
  Sex: Male

DRUGS (1)
  1. TASIGNA [Suspect]
     Indication: CHRONIC MYELOID LEUKAEMIA
     Dosage: UNK

REACTIONS (3)
  - Death [Fatal]
  - Electrocardiogram QT prolonged [Unknown]
  - Blood calcium decreased [Unknown]
